FAERS Safety Report 5201175-7 (Version None)
Quarter: 2007Q1

REPORT INFORMATION
  Report Type: 
  Country: None (occurrence: None)
  Receive Date: 20070108
  Receipt Date: 20061229
  Transmission Date: 20070707
  Serious: Yes (Other)
  Sender: FDA-Public Use
  Company Number: PHFR2006GB03485

PATIENT
  Age: 42 Year
  Sex: Female
  Weight: 62 kg

DRUGS (11)
  1. CLONAZEPAM [Suspect]
     Dosage: 2 MG, QID
     Route: 065
     Dates: start: 20060101
  2. CLOZARIL [Suspect]
     Indication: SCHIZOPHRENIA
     Dosage: 12.5MG NOCTE
     Route: 048
     Dates: start: 20061123
  3. CLOZARIL [Suspect]
     Dosage: 12.5 MG, BID
     Route: 048
     Dates: start: 20061124
  4. CLOZARIL [Suspect]
     Dosage: 25MG NOCTE
     Dates: start: 20061125
  5. CLOZARIL [Suspect]
     Dosage: 25 MG, BID
     Route: 048
     Dates: start: 20061126, end: 20061127
  6. LORAZEPAM [Suspect]
     Indication: AGITATION
     Dosage: 1 MG, STAT
     Route: 030
     Dates: start: 20061124
  7. BENDROFLUMETHIAZIDE [Concomitant]
     Indication: HYPERTENSION
     Route: 048
  8. TOLTERODINE [Concomitant]
     Indication: URINARY INCONTINENCE
     Route: 048
  9. MICONAZOLE [Concomitant]
     Indication: INTERTRIGO
     Dosage: UNK, BID
     Route: 061
     Dates: start: 20061127
  10. MOVICOL [Concomitant]
     Indication: CONSTIPATION
     Route: 048
  11. OXYGEN [Concomitant]
     Indication: CYANOSIS
     Route: 048

REACTIONS (7)
  - CYANOSIS [None]
  - CYANOSIS CENTRAL [None]
  - DRUG INTERACTION [None]
  - DYSPNOEA [None]
  - FIBRIN D DIMER INCREASED [None]
  - RALES [None]
  - RESPIRATORY DISTRESS [None]
